FAERS Safety Report 12192724 (Version 2)
Quarter: 2016Q1

REPORT INFORMATION
  Report Type: Spontaneous
  Country: IT (occurrence: IT)
  Receive Date: 20160318
  Receipt Date: 20160323
  Transmission Date: 20160526
  Serious: Yes (Hospitalization)
  Sender: FDA-Public Use
  Company Number: IT-BAYER-2016-047904

PATIENT
  Sex: Male

DRUGS (6)
  1. PANTOPRAZOLE [Concomitant]
     Active Substance: PANTOPRAZOLE SODIUM
     Dosage: UNK
     Route: 048
  2. ACETYLSALICYLIC ACID({=100 MG) [Suspect]
     Active Substance: ASPIRIN
     Dosage: UNK
     Route: 048
  3. ATORVASTATIN [Concomitant]
     Active Substance: ATORVASTATIN
     Dosage: UNK
     Route: 048
  4. ZOFENOPRIL CALCIUM [Concomitant]
     Active Substance: ZOFENOPRIL CALCIUM
     Dosage: UNK
     Route: 048
  5. OMEGA [CONVALLARIA MAJALIS,CRATAEGUS LAEVIGATA,PROXYPHYLLINE] [Concomitant]
     Dosage: UNK
  6. PRASUGREL [Interacting]
     Active Substance: PRASUGREL
     Dosage: UNK
     Route: 048

REACTIONS (4)
  - Drug interaction [Recovering/Resolving]
  - Chest pain [Recovering/Resolving]
  - Subarachnoid haemorrhage [Recovering/Resolving]
  - Cervicogenic headache [Recovering/Resolving]
